FAERS Safety Report 18335905 (Version 3)
Quarter: 2020Q4

REPORT INFORMATION
  Report Type: Spontaneous
  Country: US (occurrence: US)
  Receive Date: 20201001
  Receipt Date: 20201020
  Transmission Date: 20210113
  Serious: Yes (Other)
  Sender: FDA-Public Use
  Company Number: US-PFIZER INC-2020377668

PATIENT
  Age: 48 Year
  Sex: Male
  Weight: 113 kg

DRUGS (3)
  1. BOSULIF [Suspect]
     Active Substance: BOSUTINIB MONOHYDRATE
     Indication: CHRONIC MYELOID LEUKAEMIA
     Dosage: 500 MG, DAILY [1 TABLET DAILY]
     Route: 048
  2. BOSULIF [Suspect]
     Active Substance: BOSUTINIB MONOHYDRATE
     Dosage: 200 MG, DAILY (TAKE 2 TABLETS)
     Route: 048
     Dates: start: 20200929
  3. SPRYCEL [Suspect]
     Active Substance: DASATINIB
     Dosage: UNK

REACTIONS (2)
  - Pulmonary oedema [Unknown]
  - Nausea [Unknown]
